FAERS Safety Report 9131958 (Version 1)
Quarter: 2013Q1

REPORT INFORMATION
  Report Type: Spontaneous
  Country: GB (occurrence: GB)
  Receive Date: 20130301
  Receipt Date: 20130301
  Transmission Date: 20140127
  Serious: Yes (Other)
  Sender: FDA-Public Use
  Company Number: GB-BAXTER-2013BAX007223

PATIENT
  Age: 2 Year
  Sex: Male

DRUGS (7)
  1. IFOSFAMIDE [Suspect]
     Indication: NEUROBLASTOMA
     Dosage: 12 G/M^2
  2. CYCLOPHOSPHAMIDE INJECTION 1G [Suspect]
     Indication: NEUROBLASTOMA
     Route: 042
  3. VINCRISTINE [Suspect]
     Indication: NEUROBLASTOMA
     Dosage: ON DAY 1
  4. CISPLATIN [Suspect]
     Indication: NEUROBLASTOMA
     Dosage: ON DAY 2
  5. TENIPOSIDE [Suspect]
     Indication: NEUROBLASTOMA
     Dosage: ON DAY 4
  6. MESNA [Concomitant]
     Indication: PROPHYLAXIS
     Dosage: 12 G/M^2
  7. DEXTROSE SALINE [Concomitant]
     Indication: PROPHYLAXIS AGAINST DEHYDRATION
     Dosage: 31 M^2

REACTIONS (3)
  - Fanconi syndrome [Unknown]
  - Rickets [Recovered/Resolved]
  - Febrile neutropenia [Recovered/Resolved]
